FAERS Safety Report 23135717 (Version 3)
Quarter: 2025Q3

REPORT INFORMATION
  Report Type: Spontaneous
  Country: JP (occurrence: JP)
  Receive Date: 20231101
  Receipt Date: 20250812
  Transmission Date: 20251021
  Serious: No
  Sender: ALEXION PHARMACEUTICALS
  Company Number: 2023A244425

PATIENT
  Age: 59 Year
  Sex: Female
  Weight: 52 kg

DRUGS (19)
  1. DAPAGLIFLOZIN [Suspect]
     Active Substance: DAPAGLIFLOZIN
     Indication: Type 1 diabetes mellitus
     Dosage: 5 MILLIGRAM, QD
     Dates: start: 20210325, end: 20210616
  2. NOVORAPID [Suspect]
     Active Substance: INSULIN ASPART
     Dosage: 10-13 IU
     Route: 065
  3. NOVORAPID [Suspect]
     Active Substance: INSULIN ASPART
     Indication: Type 1 diabetes mellitus
     Dates: start: 20090609, end: 2021
  4. NOVORAPID [Suspect]
     Active Substance: INSULIN ASPART
  5. TRESIBA [Suspect]
     Active Substance: INSULIN DEGLUDEC
     Indication: Type 1 diabetes mellitus
     Dosage: 35 IU
     Route: 065
  6. TRESIBA [Suspect]
     Active Substance: INSULIN DEGLUDEC
     Dates: start: 20090609, end: 2021
  7. TRESIBA [Suspect]
     Active Substance: INSULIN DEGLUDEC
  8. TIMOLOL MALEATE\TRAVOPROST [Concomitant]
     Active Substance: TIMOLOL MALEATE\TRAVOPROST
     Dosage: 1 DOSAGE FORM, QD
  9. TIMOLOL MALEATE\TRAVOPROST [Concomitant]
     Active Substance: TIMOLOL MALEATE\TRAVOPROST
  10. TIMOLOL MALEATE\TRAVOPROST [Concomitant]
     Active Substance: TIMOLOL MALEATE\TRAVOPROST
     Dosage: 1 DOSAGE FORM
  11. AZOPT [Concomitant]
     Active Substance: BRINZOLAMIDE
     Dosage: 1 DOSAGE FORM, BID
  12. AZOPT [Concomitant]
     Active Substance: BRINZOLAMIDE
  13. AZOPT [Concomitant]
     Active Substance: BRINZOLAMIDE
     Dosage: 1 DOSAGE FORM
  14. PATANOL [Concomitant]
     Active Substance: OLOPATADINE HYDROCHLORIDE
     Dosage: 1 DOSAGE FORM, QID
  15. PATANOL [Concomitant]
     Active Substance: OLOPATADINE HYDROCHLORIDE
  16. PATANOL [Concomitant]
     Active Substance: OLOPATADINE HYDROCHLORIDE
     Dosage: 1 DOSAGE FORM
  17. CYANOCOBALAMIN [Concomitant]
     Active Substance: CYANOCOBALAMIN
     Dosage: 1 DOSAGE FORM, QD
  18. CYANOCOBALAMIN [Concomitant]
     Active Substance: CYANOCOBALAMIN
  19. CYANOCOBALAMIN [Concomitant]
     Active Substance: CYANOCOBALAMIN

REACTIONS (1)
  - Pruritus genital [Recovered/Resolved]

NARRATIVE: CASE EVENT DATE: 20210325
